FAERS Safety Report 16141569 (Version 1)
Quarter: 2019Q1

REPORT INFORMATION
  Report Type: Spontaneous
  Country: US (occurrence: US)
  Receive Date: 20190227
  Receipt Date: 20190227
  Transmission Date: 20190418
  Serious: Yes (Hospitalization)
  Sender: FDA-Public Use
  Company Number: None

PATIENT
  Age: 72 Year
  Sex: Male

DRUGS (40)
  1. ESBRIET [Suspect]
     Active Substance: PIRFENIDONE
     Indication: IDIOPATHIC PULMONARY FIBROSIS
     Route: 048
     Dates: start: 20180613
  2. WARFARIN [Concomitant]
     Active Substance: WARFARIN
  3. AZITHROMYCIN ANHYDROUS. [Concomitant]
     Active Substance: AZITHROMYCIN ANHYDROUS
  4. TACROLIMUS. [Concomitant]
     Active Substance: TACROLIMUS
  5. SENNA [Concomitant]
     Active Substance: SENNA LEAF\SENNOSIDES\SENNOSIDES A AND B
  6. ASPIRIN. [Concomitant]
     Active Substance: ASPIRIN
  7. MAGNESIUM-OX [Concomitant]
  8. ALBUTEROL. [Concomitant]
     Active Substance: ALBUTEROL
  9. AZATHIOPRINE. [Concomitant]
     Active Substance: AZATHIOPRINE
  10. CALCIUM CITRATE + D3 [Concomitant]
  11. VALGANCICLOVIR. [Concomitant]
     Active Substance: VALGANCICLOVIR
  12. CHLORHEX GLU [Concomitant]
  13. POLYETH GLYC [Concomitant]
     Active Substance: POLYETHYLENE GLYCOLS
  14. SIMVASTATIN. [Concomitant]
     Active Substance: SIMVASTATIN
  15. CEFUROXIME. [Concomitant]
     Active Substance: CEFUROXIME
  16. IPRATROPIUM [Concomitant]
     Active Substance: IPRATROPIUM
  17. LIDOCAINE. [Concomitant]
     Active Substance: LIDOCAINE
  18. CLOTRIMAZOLE. [Concomitant]
     Active Substance: CLOTRIMAZOLE
  19. SMZ-TMF [Concomitant]
  20. PROVENTIL [Concomitant]
     Active Substance: ALBUTEROL
  21. MONTELUKAST [Concomitant]
     Active Substance: MONTELUKAST SODIUM
  22. SYMBICORT [Concomitant]
     Active Substance: BUDESONIDE\FORMOTEROL FUMARATE DIHYDRATE
  23. STOOL SOFTENER (DOCUSATE) [Concomitant]
     Active Substance: DOCUSATE
  24. OMEPRAZOLE. [Concomitant]
     Active Substance: OMEPRAZOLE
  25. VIRTUSSIN AC [Concomitant]
     Active Substance: CODEINE PHOSPHATE\GUAIFENESIN
  26. IPRATROPIUM [Concomitant]
     Active Substance: IPRATROPIUM
  27. DEXILANT [Concomitant]
     Active Substance: DEXLANSOPRAZOLE
  28. C/ROSE HIPS [Concomitant]
  29. METOPROLOL TARTRATE. [Concomitant]
     Active Substance: METOPROLOL TARTRATE
  30. PRAVASTATIN. [Concomitant]
     Active Substance: PRAVASTATIN
  31. BENZONATATE. [Concomitant]
     Active Substance: BENZONATATE
  32. LANTUS [Concomitant]
     Active Substance: INSULIN GLARGINE
  33. ZOLPIDEM [Concomitant]
     Active Substance: ZOLPIDEM\ZOLPIDEM TARTRATE
  34. ATORVASTATIN [Concomitant]
     Active Substance: ATORVASTATIN
  35. FEROSUL [Concomitant]
  36. SUCRALFATE. [Concomitant]
     Active Substance: SUCRALFATE
  37. JANUVIA [Concomitant]
     Active Substance: SITAGLIPTIN PHOSPHATE
  38. PREDNISONE. [Concomitant]
     Active Substance: PREDNISONE
  39. TRIAMT/HCTZ [Concomitant]
     Active Substance: HYDROCHLOROTHIAZIDE\TRIAMTERENE
  40. ELIQUIS [Concomitant]
     Active Substance: APIXABAN

REACTIONS (1)
  - Lung transplant [None]

NARRATIVE: CASE EVENT DATE: 20190217
